FAERS Safety Report 15934468 (Version 2)
Quarter: 2019Q1

REPORT INFORMATION
  Report Type: Spontaneous
  Country: US (occurrence: US)
  Receive Date: 20190207
  Receipt Date: 20190221
  Transmission Date: 20190417
  Serious: Yes (Hospitalization)
  Sender: FDA-Public Use
  Company Number: US-UNITED THERAPEUTICS-UNT-2019-001802

PATIENT
  Age: 49 Year
  Sex: Female
  Weight: 59.86 kg

DRUGS (2)
  1. LETAIRIS [Concomitant]
     Active Substance: AMBRISENTAN
     Indication: PRODUCT USED FOR UNKNOWN INDICATION
     Dosage: UNK
     Route: 065
  2. REMODULIN [Suspect]
     Active Substance: TREPROSTINIL
     Indication: PULMONARY ARTERIAL HYPERTENSION
     Dosage: 0.09 ?G/KG, CONTINUING
     Route: 058
     Dates: start: 20160404

REACTIONS (5)
  - Dyspnoea [Unknown]
  - Unresponsive to stimuli [Unknown]
  - Syncope [Unknown]
  - Pneumonia [Unknown]
  - Apnoea [Unknown]

NARRATIVE: CASE EVENT DATE: 20190102
